FAERS Safety Report 5923097-6 (Version None)
Quarter: 2008Q4

REPORT INFORMATION
  Report Type: 
  Country: None (occurrence: None)
  Receive Date: 20081018
  Receipt Date: 20080820
  Transmission Date: 20090506
  Serious: Yes (Life-Threatening, Hospitalization)
  Sender: FDA-Public Use
  Company Number: FR-PFIZER INC-2008086128

PATIENT
  Sex: Male

DRUGS (3)
  1. HYDROXYZINE HYDROCHLORIDE (IM) [Suspect]
     Indication: AGITATION
     Dosage: DAILY DOSE:150MG-FREQ:TID
     Route: 042
     Dates: start: 20080808, end: 20080808
  2. LEVETIRACETAM [Suspect]
     Indication: POST-ANOXIC MYOCLONUS
     Dosage: DAILY DOSE:1500MG-FREQ:TID
     Route: 042
     Dates: start: 20080808, end: 20080819
  3. DIAZEPAM [Suspect]
     Indication: POST-ANOXIC MYOCLONUS
     Dosage: TEXT:10 MG 4 TIMES A DAY
     Route: 042
     Dates: start: 20080808, end: 20080816

REACTIONS (2)
  - COMA [None]
  - DISTURBANCE IN ATTENTION [None]
